FAERS Safety Report 17068346 (Version 1)
Quarter: 2019Q4

REPORT INFORMATION
  Report Type: Report from Study
  Country: CA (occurrence: CA)
  Receive Date: 20191123
  Receipt Date: 20191123
  Transmission Date: 20200122
  Serious: Yes (Other)
  Sender: FDA-Public Use
  Company Number: CA-TEVA-2019-CA-1139453

PATIENT
  Age: 25 Year
  Sex: Female
  Weight: 52 kg

DRUGS (10)
  1. ZANTAC [Concomitant]
     Active Substance: RANITIDINE HYDROCHLORIDE
     Indication: FLATULENCE
  2. AZATHIOPRINE. [Concomitant]
     Active Substance: AZATHIOPRINE
  3. RABEPRAZOLE [Concomitant]
     Active Substance: RABEPRAZOLE
  4. PREDNISONE. [Suspect]
     Active Substance: PREDNISONE
     Indication: PRODUCT USED FOR UNKNOWN INDICATION
     Route: 065
  5. SOLU-MEDROL [Concomitant]
     Active Substance: METHYLPREDNISOLONE SODIUM SUCCINATE
     Route: 042
  6. ACETAMINOPHEN. [Concomitant]
     Active Substance: ACETAMINOPHEN
     Route: 048
  7. RITUXIMAB. [Suspect]
     Active Substance: RITUXIMAB
     Indication: PEMPHIGUS
     Route: 042
  8. ACETAMINOPHEN. [Concomitant]
     Active Substance: ACETAMINOPHEN
     Indication: PREMEDICATION
     Route: 048
  9. METHYLPREDNISOLON [METHYLPREDNISOLONE] [Concomitant]
     Active Substance: METHYLPREDNISOLONE
     Indication: PREMEDICATION
     Route: 042
  10. DIPHENHYDRAMINE HYDROCHLORIDE. [Concomitant]
     Active Substance: DIPHENHYDRAMINE HYDROCHLORIDE
     Indication: PREMEDICATION
     Route: 048

REACTIONS (9)
  - Blood pressure fluctuation [Not Recovered/Not Resolved]
  - Flatulence [Not Recovered/Not Resolved]
  - Milk allergy [Not Recovered/Not Resolved]
  - Gastritis [Not Recovered/Not Resolved]
  - Infusion related reaction [Not Recovered/Not Resolved]
  - Food intolerance [Not Recovered/Not Resolved]
  - Oral disorder [Not Recovered/Not Resolved]
  - Nasopharyngitis [Not Recovered/Not Resolved]
  - Abdominal discomfort [Not Recovered/Not Resolved]
